FAERS Safety Report 21526850 (Version 2)
Quarter: 2022Q4

REPORT INFORMATION
  Report Type: Report from Study
  Country: US (occurrence: US)
  Receive Date: 20221031
  Receipt Date: 20221226
  Transmission Date: 20230113
  Serious: Yes (Other)
  Sender: FDA-Public Use
  Company Number: US-ABBVIE-4179451

PATIENT
  Age: 55 Year
  Sex: Female
  Weight: 106 kg

DRUGS (11)
  1. RINVOQ [Suspect]
     Active Substance: UPADACITINIB
     Indication: Rheumatoid arthritis
     Dosage: 15 MILLIGRAM
     Route: 048
     Dates: start: 202202
  2. GABAPENTIN [Concomitant]
     Active Substance: GABAPENTIN
     Indication: Neuralgia
  3. MODERNA COVID-19 VACCINE [Concomitant]
     Active Substance: ELASOMERAN
     Indication: COVID-19 immunisation
     Dosage: FREQUENCY: ONE IN ONCE
     Route: 030
  4. DICLOFENAC [Concomitant]
     Active Substance: DICLOFENAC
     Indication: Arthralgia
  5. FOLIC ACID [Concomitant]
     Active Substance: FOLIC ACID
     Indication: Rheumatoid arthritis
  6. ATENOLOL [Concomitant]
     Active Substance: ATENOLOL
     Indication: Rheumatoid arthritis
  7. METHOCARBAMOL [Concomitant]
     Active Substance: METHOCARBAMOL
     Indication: Muscle spasms
  8. TRULANCE [Concomitant]
     Active Substance: PLECANATIDE
     Indication: Dyspepsia
  9. TYLENOL [Concomitant]
     Active Substance: ACETAMINOPHEN
     Indication: Arthralgia
  10. LOSARTAN [Concomitant]
     Active Substance: LOSARTAN
     Indication: Blood pressure management
  11. OMEPRAZOLE [Concomitant]
     Active Substance: OMEPRAZOLE
     Indication: Gastrooesophageal reflux disease

REACTIONS (3)
  - Rotator cuff syndrome [Recovered/Resolved]
  - Musculoskeletal stiffness [Recovering/Resolving]
  - Limb discomfort [Recovering/Resolving]

NARRATIVE: CASE EVENT DATE: 20220501
